FAERS Safety Report 13599127 (Version 1)
Quarter: 2017Q2

REPORT INFORMATION
  Report Type: Spontaneous
  Country: IT (occurrence: IT)
  Receive Date: 20170531
  Receipt Date: 20170531
  Transmission Date: 20170830
  Serious: Yes (Hospitalization)
  Sender: FDA-Public Use
  Company Number: PHHY2017IT075161

PATIENT
  Age: 44 Year
  Sex: Male

DRUGS (2)
  1. LEFLUNOMIDE. [Suspect]
     Active Substance: LEFLUNOMIDE
     Indication: PYODERMA GANGRENOSUM
     Dosage: 20 MG, QD
     Route: 065
  2. PREDNISONE. [Suspect]
     Active Substance: PREDNISONE
     Indication: PYODERMA GANGRENOSUM
     Route: 065

REACTIONS (3)
  - Antiphospholipid syndrome [Recovered/Resolved]
  - Drug ineffective [Unknown]
  - Staphylococcal infection [Recovered/Resolved]
